FAERS Safety Report 9627126 (Version 2)
Quarter: 2013Q4

REPORT INFORMATION
  Report Type: Spontaneous
  Country: US (occurrence: US)
  Receive Date: 20131016
  Receipt Date: 20131126
  Transmission Date: 20140711
  Serious: Yes (Death, Other)
  Sender: FDA-Public Use
  Company Number: US-VERTEX PHARMACEUTICALS INC-2013-010360

PATIENT
  Sex: 0

DRUGS (1)
  1. INCIVEK [Suspect]
     Indication: HEPATITIS C

REACTIONS (9)
  - Hepatic failure [Fatal]
  - Myocardial infarction [Fatal]
  - Hepatic cirrhosis [Unknown]
  - Infection [Unknown]
  - Drug reaction with eosinophilia and systemic symptoms [Unknown]
  - Rash [Unknown]
  - Anaemia [Unknown]
  - Anorectal disorder [Unknown]
  - Dysgeusia [Unknown]
